FAERS Safety Report 13859381 (Version 2)
Quarter: 2017Q3

REPORT INFORMATION
  Report Type: Spontaneous
  Country: JP (occurrence: JP)
  Receive Date: 20170811
  Receipt Date: 20170822
  Transmission Date: 20171127
  Serious: Yes (Death, Hospitalization, Other)
  Sender: FDA-Public Use
  Company Number: JP-TEVA-794420ROM

PATIENT
  Age: 7 Decade
  Sex: Male
  Weight: 61.8 kg

DRUGS (5)
  1. AMRUBICIN [Suspect]
     Active Substance: AMRUBICIN
     Indication: SMALL CELL LUNG CANCER
     Route: 065
  2. ETOPOSIDE. [Suspect]
     Active Substance: ETOPOSIDE
     Indication: SMALL CELL LUNG CANCER
     Route: 065
  3. IRINOTECAN [Suspect]
     Active Substance: IRINOTECAN
     Indication: SMALL CELL LUNG CANCER
     Dosage: 80MG/M2
     Route: 065
  4. CISPLATIN. [Suspect]
     Active Substance: CISPLATIN
     Indication: SMALL CELL LUNG CANCER
     Route: 065
  5. AMPICILLIN [Suspect]
     Active Substance: AMPICILLIN
     Indication: PNEUMOCOCCAL INFECTION
     Dosage: 2G
     Route: 065

REACTIONS (7)
  - Disseminated intravascular coagulation [Unknown]
  - Pneumonia pneumococcal [Fatal]
  - Acute kidney injury [Fatal]
  - Neutropenia [Unknown]
  - Acute respiratory distress syndrome [Unknown]
  - Septic shock [Fatal]
  - Leukopenia [Unknown]
